FAERS Safety Report 15525097 (Version 8)
Quarter: 2020Q2

REPORT INFORMATION
  Report Type: Report from Study
  Country: DK (occurrence: DK)
  Receive Date: 20181018
  Receipt Date: 20200619
  Transmission Date: 20200713
  Serious: Yes (Hospitalization)
  Sender: FDA-Public Use
  Company Number: DK-ROCHE-2198330

PATIENT
  Age: 71 Year
  Sex: Male
  Weight: 85.6 kg

DRUGS (14)
  1. INDOMETHACIN [INDOMETACIN] [Concomitant]
     Active Substance: INDOMETHACIN
     Route: 065
     Dates: start: 20180917, end: 20190730
  2. SILDENAFIL. [Concomitant]
     Active Substance: SILDENAFIL
     Route: 065
     Dates: start: 20170717, end: 20190102
  3. RANITIDIN [Concomitant]
     Active Substance: RANITIDINE HYDROCHLORIDE
     Route: 065
     Dates: start: 20180917, end: 20190730
  4. ATEZOLIZUMAB. [Suspect]
     Active Substance: ATEZOLIZUMAB
     Indication: RENAL CELL CARCINOMA
     Dosage: DATE OF LAST DOSE ADMINISTERED PRIOR TO FIRST OCCURRENCE OF INCREASED CREATININE WAS 08/OCT/2018?DAT
     Route: 041
     Dates: start: 20180917
  5. COZAAR COMP [Concomitant]
     Active Substance: HYDROCHLOROTHIAZIDE\LOSARTAN POTASSIUM
     Dosage: 50+12.5 MG
     Route: 065
     Dates: start: 20180906, end: 20181026
  6. DOMPERIDON [DOMPERIDONE] [Concomitant]
     Route: 065
     Dates: start: 20180917, end: 20190621
  7. RO6874281 (FAP IL2V MAB) [Suspect]
     Active Substance: SIMLUKAFUSP ALFA
     Dosage: DOSE REDUCED
     Route: 042
     Dates: start: 20181029
  8. PETHIDIN [Concomitant]
     Active Substance: MEPERIDINE
     Route: 065
     Dates: start: 20180917, end: 20181008
  9. HALCION [Concomitant]
     Active Substance: TRIAZOLAM
     Route: 065
     Dates: start: 20180907
  10. RO6874281 (FAP IL2V MAB) [Suspect]
     Active Substance: SIMLUKAFUSP ALFA
     Indication: RENAL CELL CARCINOMA
     Dosage: DATE OF LAST DOSE ADMINISTERED PRIOR TO FIRST OCCURRENCE OF INCREASED CREATININE WAS 08/OCT/2018?DAT
     Route: 042
     Dates: start: 20180917
  11. BEVACIZUMAB. [Suspect]
     Active Substance: BEVACIZUMAB
     Indication: RENAL CELL CARCINOMA
     Dosage: DATE OF LAST DOSE ADMINISTERED PRIOR TO SECOND OCCURRENCE OF INCREASED CREATININE WAS 02/JAN/2019 (1
     Route: 042
     Dates: start: 20180917
  12. TAVEGYL [Concomitant]
     Active Substance: CLEMASTINE FUMARATE
     Route: 065
     Dates: start: 20180917
  13. PARACETAMOL [Concomitant]
     Active Substance: ACETAMINOPHEN
     Route: 065
     Dates: start: 20180911, end: 20190731
  14. ONDANSETRON [Concomitant]
     Active Substance: ONDANSETRON
     Route: 065
     Dates: start: 20180917, end: 20190730

REACTIONS (3)
  - Blood creatinine increased [Recovered/Resolved]
  - Incorrect dose administered [Unknown]
  - Blood creatinine increased [Recovered/Resolved]

NARRATIVE: CASE EVENT DATE: 20181008
